FAERS Safety Report 8364387-X (Version None)
Quarter: 2012Q2

REPORT INFORMATION
  Report Type: 
  Country: None (occurrence: None)
  Receive Date: 20120514
  Receipt Date: 20120430
  Transmission Date: 20120825
  Serious: Yes (Other)
  Sender: FDA-Public Use
  Company Number: 1201-012

PATIENT
  Age: 85 Year
  Sex: Female

DRUGS (3)
  1. EYLEA [Suspect]
     Indication: AGE-RELATED MACULAR DEGENERATION
     Dosage: 2 MG, 1 IN 1 M, INTRAVITREAL
     Route: 067
     Dates: start: 20120103, end: 20120103
  2. ARTIFICIAL TEARS (ARTIFICIAL TEARS) [Concomitant]
  3. PRESERVISION (PRESERVISION LUTEIN EYE VITA. [Concomitant]

REACTIONS (7)
  - HYPERSENSITIVITY [None]
  - CORNEAL OEDEMA [None]
  - HYPOPYON [None]
  - VITRITIS [None]
  - ENDOPHTHALMITIS [None]
  - ANTERIOR CHAMBER FLARE [None]
  - VITREOUS DETACHMENT [None]
